FAERS Safety Report 9470451 (Version 1)
Quarter: 2013Q3

REPORT INFORMATION
  Report Type: Spontaneous
  Country: US (occurrence: US)
  Receive Date: 20130822
  Receipt Date: 20130822
  Transmission Date: 20140515
  Serious: Yes (Other)
  Sender: FDA-Public Use
  Company Number: US-RANBAXY-2013US-72407

PATIENT
  Sex: Female
  Weight: 86.17 kg

DRUGS (13)
  1. HYDROCHLOROTHIAZIDE [Suspect]
     Indication: DIURETIC THERAPY
     Dosage: 50 MG, DAILY
     Route: 065
  2. METOPROLOL [Suspect]
     Indication: DIURETIC THERAPY
     Dosage: 50 MG, DAILY
     Route: 065
  3. PROTONIX [Suspect]
     Indication: PRODUCT USED FOR UNKNOWN INDICATION
     Dosage: UNK
     Route: 065
  4. LYRICA [Suspect]
     Indication: RESTLESS LEGS SYNDROME
     Dosage: 150 MG DAILY
     Route: 048
  5. LYRICA [Suspect]
     Indication: DIABETIC NEUROPATHY
     Dosage: 75 MG, BID
     Route: 048
     Dates: start: 200803
  6. LYRICA [Suspect]
     Indication: NEUROPATHY PERIPHERAL
     Dosage: 75 MG, BID
     Route: 048
  7. ZOLOFT [Suspect]
     Indication: PRODUCT USED FOR UNKNOWN INDICATION
     Dosage: UNK
     Route: 065
  8. XYZAL [Concomitant]
     Indication: HYPERSENSITIVITY
     Dosage: UNK
     Route: 065
  9. ALEVE [Concomitant]
     Indication: BACK PAIN
     Dosage: UNK
     Route: 065
  10. ALEVE [Concomitant]
     Indication: ANKLE FRACTURE
  11. ALEVE [Concomitant]
     Indication: MIGRAINE
  12. PANTOPRAZOLE [Concomitant]
     Indication: PRODUCT USED FOR UNKNOWN INDICATION
     Dosage: 40 MG DAILY
     Route: 065
  13. SERTRALINE [Concomitant]
     Indication: MENOPAUSE
     Dosage: 100 MG DAILY
     Route: 065

REACTIONS (7)
  - Atrophy [Unknown]
  - Pain [Unknown]
  - Urticaria [Unknown]
  - Feeling abnormal [Unknown]
  - Muscle twitching [Unknown]
  - Insomnia [Unknown]
  - Oedema peripheral [Unknown]
